FAERS Safety Report 7688497-5 (Version None)
Quarter: 2011Q3

REPORT INFORMATION
  Report Type: 
  Country: None (occurrence: None)
  Receive Date: 20110817
  Receipt Date: 20110803
  Transmission Date: 20111222
  Serious: Yes (Other)
  Sender: FDA-Public Use
  Company Number: JP-ROCHE-796982

PATIENT
  Age: 70 Year
  Sex: Female

DRUGS (2)
  1. PEG-INTRON [Suspect]
     Route: 058
     Dates: start: 20090401
  2. COPEGUS [Suspect]
     Indication: HEPATITIS C
     Route: 048

REACTIONS (1)
  - GASTRIC CANCER [None]
